FAERS Safety Report 22659143 (Version 1)
Quarter: 2023Q2

REPORT INFORMATION
  Report Type: Spontaneous
  Country: US (occurrence: US)
  Receive Date: 20230630
  Receipt Date: 20230630
  Transmission Date: 20230722
  Serious: No
  Sender: FDA-Public Use
  Company Number: US-PFIZER INC-202300233167

PATIENT
  Age: 52 Year
  Sex: Female
  Weight: 81.65 kg

DRUGS (8)
  1. GENOTROPIN [Suspect]
     Active Substance: SOMATROPIN
     Indication: Growth hormone deficiency
     Dosage: 0.3 MG, DAILY, INJECTION UNDER THE SKIN
     Route: 058
     Dates: start: 202306
  2. LEVOTHYROXINE [Concomitant]
     Active Substance: LEVOTHYROXINE
     Indication: Hypothyroidism
     Dosage: 150 UG, DAILY
  3. DESMOPRESSIN [Concomitant]
     Active Substance: DESMOPRESSIN
     Indication: Urine analysis abnormal
     Dosage: 0.1 MG, 2X/DAY
  4. PANTOPRAZOLE [Concomitant]
     Active Substance: PANTOPRAZOLE
     Indication: Gastritis
     Dosage: 40 MG, 1X/DAY
  5. FLUDROCORTISONE [Concomitant]
     Active Substance: FLUDROCORTISONE
     Indication: Fluid replacement
     Dosage: 0.1 MG, 1X/DAY
  6. LISINOPRIL [Concomitant]
     Active Substance: LISINOPRIL
     Indication: Hypertension
     Dosage: 5 MG, 1X/DAY
  7. METFORMIN [Concomitant]
     Active Substance: METFORMIN HYDROCHLORIDE
     Indication: Glucose tolerance impaired
     Dosage: 500 MG, 1X/DAY
  8. HYDROCORTISONE [Concomitant]
     Active Substance: HYDROCORTISONE
     Indication: Steroid therapy
     Dosage: 15 MG, DAILY (10MG TABLET IN THE MORNING AND 5MG IN THE EVENING)

REACTIONS (5)
  - Device breakage [Unknown]
  - Device information output issue [Unknown]
  - Drug dose omission by device [Unknown]
  - Nervousness [Unknown]
  - Visual impairment [Unknown]

NARRATIVE: CASE EVENT DATE: 20230601
